FAERS Safety Report 12413032 (Version 3)
Quarter: 2016Q2

REPORT INFORMATION
  Report Type: Spontaneous
  Country: CN (occurrence: CN)
  Receive Date: 20160527
  Receipt Date: 20160613
  Transmission Date: 20160815
  Serious: No
  Sender: FDA-Public Use
  Company Number: CN-009507513-1504CHN017894

PATIENT
  Age: 57 Year
  Sex: Male
  Weight: 75 kg

DRUGS (77)
  1. METOCLOPRAMIDE. [Concomitant]
     Active Substance: METOCLOPRAMIDE
     Dosage: CONTINUOUSLY PUMPED
     Dates: start: 20150307, end: 20150313
  2. PANTOPRAZOLE [Concomitant]
     Active Substance: PANTOPRAZOLE SODIUM
     Indication: PROPHYLAXIS
     Dosage: 80 MG DAILY, BID
     Route: 041
     Dates: start: 20150307, end: 20150313
  3. POTASSIUM CHLORIDE. [Concomitant]
     Active Substance: POTASSIUM CHLORIDE
     Indication: ELECTROLYTE IMBALANCE
     Dosage: 30 ML/CC, QD
     Route: 041
     Dates: start: 20150314, end: 20150401
  4. IPRATROPIUM BROMIDE. [Concomitant]
     Active Substance: IPRATROPIUM BROMIDE
     Dosage: 4 ML/CC DAILY DOSE, BID
     Route: 055
     Dates: start: 20150314, end: 20150320
  5. AMBROXOL HYDROCHLORIDE [Concomitant]
     Active Substance: AMBROXOL HYDROCHLORIDE
     Dosage: DAILY DOSE 30 MG, UNK
     Route: 055
     Dates: start: 20150313, end: 20150313
  6. DEXAMETHASONE. [Concomitant]
     Active Substance: DEXAMETHASONE
     Indication: ANTIEMETIC SUPPORTIVE CARE
     Dosage: DAILY DOSE 8 MG, BID
     Route: 048
     Dates: start: 20150313, end: 20150313
  7. METHYLPREDNISOLONE SODIUM SUCCINATE. [Concomitant]
     Active Substance: METHYLPREDNISOLONE SODIUM SUCCINATE
     Dosage: 40 MG DAILY, ST
     Route: 041
     Dates: start: 20150310, end: 20150312
  8. ESTAZOLAM. [Concomitant]
     Active Substance: ESTAZOLAM
     Indication: INSOMNIA
     Dosage: 2 MG, ST
     Route: 048
     Dates: start: 20150310, end: 20150310
  9. CEFOPERAZONE SODIUM (+) SULBACTAM SODIUM [Concomitant]
     Active Substance: CEFOPERAZONE SODIUM\SULBACTAM SODIUM
     Dosage: 9 G DAILY, Q8H
     Route: 041
     Dates: start: 20150307, end: 20150308
  10. DIPHENHYDRAMINE. [Concomitant]
     Active Substance: DIPHENHYDRAMINE
     Indication: DIZZINESS
     Dosage: 20 MG, ST
     Route: 030
     Dates: start: 20150316, end: 20150316
  11. EMEND [Suspect]
     Active Substance: APREPITANT
     Dosage: 80 MG, ONCE; DAY 2
     Route: 048
     Dates: start: 20150315, end: 20150315
  12. PYRIDOXINE [Concomitant]
     Active Substance: PYRIDOXINE
     Indication: IMMUNE ENHANCEMENT THERAPY
     Dosage: 100 MG, QD
     Route: 041
     Dates: start: 20150315, end: 20150401
  13. CEFOPERAZONE SODIUM (+) SULBACTAM SODIUM [Concomitant]
     Active Substance: CEFOPERAZONE SODIUM\SULBACTAM SODIUM
     Dosage: 9 G DAILY, Q8H
     Route: 041
     Dates: start: 20150311, end: 20150313
  14. ENOXAPARIN SODIUM. [Concomitant]
     Active Substance: ENOXAPARIN SODIUM
     Dosage: 0.6 ML/CC, QD
     Route: 058
     Dates: start: 20150311, end: 20150313
  15. OMEPRAZOLE. [Concomitant]
     Active Substance: OMEPRAZOLE
     Indication: PROPHYLAXIS
     Dosage: 80 MG DAILY, BID
     Route: 041
     Dates: start: 20150314, end: 20150328
  16. TRAMADOL HYDROCHLORIDE. [Concomitant]
     Active Substance: TRAMADOL HYDROCHLORIDE
     Dosage: 400 MG,  CONTINUOSLY PUMPED.
     Route: 041
     Dates: start: 20150307, end: 20150313
  17. AZITHROMYCIN ANHYDROUS. [Concomitant]
     Active Substance: AZITHROMYCIN ANHYDROUS
     Indication: ANTIINFLAMMATORY THERAPY
     Dosage: 0.25 G, QD
     Route: 048
     Dates: start: 20150304, end: 20150307
  18. TORSEMIDE. [Concomitant]
     Active Substance: TORSEMIDE
     Dosage: 10 MG DAILY,ST
     Route: 041
     Dates: start: 20150311, end: 20150311
  19. TORSEMIDE. [Concomitant]
     Active Substance: TORSEMIDE
     Dosage: 20 MG, ST
     Route: 041
     Dates: start: 20150321, end: 20150321
  20. FAT (UNSPECIFIED) [Concomitant]
     Dosage: 250 ML/CC, QD
     Route: 041
     Dates: start: 20150307, end: 20150313
  21. METOCLOPRAMIDE. [Concomitant]
     Active Substance: METOCLOPRAMIDE
     Dosage: 10 MG, ST
     Route: 030
     Dates: start: 20150307, end: 20150307
  22. PANTOPRAZOLE [Concomitant]
     Active Substance: PANTOPRAZOLE SODIUM
     Dosage: 80 MG DAILY, BID
     Route: 041
     Dates: start: 20150314, end: 20150314
  23. POTASSIUM CHLORIDE. [Concomitant]
     Active Substance: POTASSIUM CHLORIDE
     Indication: NUTRITIONAL SUPPLEMENTATION
     Dosage: 30 ML/CC, QD
     Route: 041
     Dates: start: 20150307, end: 20150313
  24. POTASSIUM CHLORIDE. [Concomitant]
     Active Substance: POTASSIUM CHLORIDE
     Dosage: 10 ML/CC, QD
     Route: 041
     Dates: start: 20150316, end: 20150401
  25. AMBROXOL HYDROCHLORIDE [Concomitant]
     Active Substance: AMBROXOL HYDROCHLORIDE
     Dosage: DAILY DOSE 30 MG, BID
     Route: 055
     Dates: start: 20150308, end: 20150313
  26. CETYLPYRIDINIUM CHLORIDE. [Concomitant]
     Active Substance: CETYLPYRIDINIUM CHLORIDE
     Dosage: 60 ML/CC, DAILY, TID
     Route: 050
     Dates: start: 20150316, end: 20150401
  27. MORPHINE [Concomitant]
     Active Substance: MORPHINE
     Dosage: 10 MG, FREQUENCY: ^ST^
     Route: 058
     Dates: start: 20150307, end: 20150307
  28. MORPHINE [Concomitant]
     Active Substance: MORPHINE
     Dosage: 120 MG, QD, CONTINUOUSLY PUMPED
     Route: 041
     Dates: start: 20150314, end: 20150325
  29. DOXOFYLLINE [Concomitant]
     Active Substance: DOXOFYLLINE
     Dosage: 0.2 G, QD
     Route: 041
     Dates: start: 20150315, end: 20150316
  30. 1-BUTYRYL-4-CINNAMYLPIPERAZINE HYDROCHLORIDE [Concomitant]
     Dosage: 2.0 ML/CC, ST
     Route: 030
     Dates: start: 20150309, end: 20150309
  31. CEFOPERAZONE SODIUM (+) SULBACTAM SODIUM [Concomitant]
     Active Substance: CEFOPERAZONE SODIUM\SULBACTAM SODIUM
     Dosage: 9 G DAILY, Q8H
     Route: 041
     Dates: start: 20150314, end: 20150314
  32. FAT (UNSPECIFIED) [Concomitant]
     Indication: NUTRITIONAL SUPPLEMENTATION
     Dosage: 250 ML/CC, QD
     Route: 041
     Dates: start: 20150314, end: 20150401
  33. ANISODAMINE [Concomitant]
     Active Substance: ANISODAMINE
     Indication: PROPHYLAXIS OF NAUSEA AND VOMITING
     Dosage: 10 MG, FREQUENCY ST
     Route: 030
     Dates: start: 20150307, end: 20150307
  34. HEMOCOAGULASE [Concomitant]
     Dosage: 1 DF, FREQUENCY: ST
     Route: 030
     Dates: start: 20150317, end: 20150317
  35. FENTANYL. [Concomitant]
     Active Substance: FENTANYL
     Dosage: 16.8 MG, QD; PATCH
     Route: 062
     Dates: start: 20150318, end: 20150401
  36. EMEND [Suspect]
     Active Substance: APREPITANT
     Dosage: 80 MG, ONCE; DAY 3
     Route: 048
     Dates: start: 20150316, end: 20150316
  37. 50% GLUCOSE INJECTION DEXTROSE INJECTION [Concomitant]
     Dosage: 100 ML/CC QD
     Route: 041
     Dates: start: 20150316, end: 20150401
  38. AMINO ACIDS (UNSPECIFIED) [Concomitant]
     Active Substance: AMINO ACIDS
     Indication: NUTRITIONAL SUPPLEMENTATION
     Dosage: 250 ML/CC, QD
     Route: 041
     Dates: start: 20150307, end: 20150313
  39. CEFOPERAZONE SODIUM (+) SULBACTAM SODIUM [Concomitant]
     Active Substance: CEFOPERAZONE SODIUM\SULBACTAM SODIUM
     Dosage: 9 G DAILY, Q8H
     Route: 041
     Dates: start: 20150314, end: 20150314
  40. MORPHINE [Concomitant]
     Active Substance: MORPHINE
     Dosage: 120 MG,CONTINUOSLY PUMPED
     Route: 041
     Dates: start: 20150307, end: 20150313
  41. TRAMADOL HYDROCHLORIDE. [Concomitant]
     Active Substance: TRAMADOL HYDROCHLORIDE
     Dosage: 400 MG, UNK, CONTINUOUSLY PUMPED
     Route: 041
     Dates: start: 20150314, end: 20150314
  42. AMBROXOL HYDROCHLORIDE [Concomitant]
     Active Substance: AMBROXOL HYDROCHLORIDE
     Dosage: TOTAL DAILY DOSE 60 MG, BID
     Route: 041
     Dates: start: 20150312, end: 20150312
  43. PANTOPRAZOLE [Concomitant]
     Active Substance: PANTOPRAZOLE SODIUM
     Dosage: 40 MG, ST
     Route: 041
     Dates: start: 20150315, end: 20150315
  44. PHLOROGLUCINOL [Concomitant]
     Active Substance: PHLOROGLUCINOL
     Dosage: 80 MG, QD
     Route: 041
     Dates: start: 20150314, end: 20150317
  45. 50% GLUCOSE INJECTION DEXTROSE INJECTION [Concomitant]
     Indication: NUTRITIONAL SUPPLEMENTATION
     Dosage: 100 ML/CC, QD
     Route: 041
     Dates: start: 20150307, end: 20150313
  46. 50% GLUCOSE INJECTION DEXTROSE INJECTION [Concomitant]
     Dosage: 60 ML/CC, QD
     Route: 041
     Dates: start: 20150315, end: 20150316
  47. PIPERACILLIN AND TAZOBACTAM [Concomitant]
     Active Substance: PIPERACILLIN SODIUM\TAZOBACTAM SODIUM
     Indication: ANTIINFLAMMATORY THERAPY
     Dosage: 13.5 G DAILY, Q8H
     Route: 041
     Dates: start: 20150308, end: 20150311
  48. VITAMINS (UNSPECIFIED) [Concomitant]
     Active Substance: VITAMINS
     Indication: NUTRITIONAL SUPPLEMENTATION
     Dosage: 10 ML/CC,QD
     Route: 041
     Dates: start: 20150314, end: 20150401
  49. VITAMINS (UNSPECIFIED) [Concomitant]
     Active Substance: VITAMINS
     Dosage: 10 ML/CC, QD
     Route: 041
     Dates: start: 20150307, end: 20150313
  50. ANISODAMINE [Concomitant]
     Active Substance: ANISODAMINE
     Dosage: 10 MG, FREQUENCY ST
     Route: 030
     Dates: start: 20150309, end: 20150309
  51. FENTANYL. [Concomitant]
     Active Substance: FENTANYL
     Dosage: DAILY DOSE 12.6MG, Q3D; PATCH
     Route: 062
     Dates: start: 20150317, end: 20150318
  52. METOCLOPRAMIDE. [Concomitant]
     Active Substance: METOCLOPRAMIDE
     Indication: ANTIEMETIC SUPPORTIVE CARE
     Dosage: 10 MG, ST
     Route: 030
     Dates: start: 20150316, end: 20150322
  53. PEMETREXED DISODIUM [Concomitant]
     Active Substance: PEMETREXED DISODIUM
     Indication: CHEMOTHERAPY
     Dosage: 0.8 G, D1; CYCLE 1/4-6
     Route: 042
     Dates: start: 20150314, end: 20150314
  54. PHLOROGLUCINOL [Concomitant]
     Active Substance: PHLOROGLUCINOL
     Dosage: 80 MG, QD
     Route: 041
     Dates: start: 20150307, end: 20150313
  55. ENOXAPARIN SODIUM. [Concomitant]
     Active Substance: ENOXAPARIN SODIUM
     Dosage: 0.6 ML/CC, QD
     Route: 058
     Dates: start: 20150314, end: 20150317
  56. IPRATROPIUM BROMIDE. [Concomitant]
     Active Substance: IPRATROPIUM BROMIDE
     Dosage: DAILY DOSE 4 ML/CC, BID
     Route: 055
     Dates: start: 20150313, end: 20150313
  57. DOXOFYLLINE [Concomitant]
     Active Substance: DOXOFYLLINE
     Dosage: 0.2 G, ST
     Route: 041
     Dates: start: 20150310, end: 20150312
  58. 1-BUTYRYL-4-CINNAMYLPIPERAZINE HYDROCHLORIDE [Concomitant]
     Dosage: TOTAL DAILY DOSE: 6 ML/CC, TID
     Route: 030
     Dates: start: 20150307, end: 20150307
  59. AZASETRON [Concomitant]
     Active Substance: AZASETRON
     Indication: ANTIEMETIC SUPPORTIVE CARE
     Dosage: 50 MG, ONCE
     Route: 041
     Dates: start: 20150314, end: 20150314
  60. DEXAMETHASONE ACETATE [Concomitant]
     Active Substance: DEXAMETHASONE ACETATE
     Indication: PROPHYLAXIS OF NAUSEA AND VOMITING
     Dosage: TOTAL DAILY DOSE 10 MG, ONCE
     Route: 041
     Dates: start: 20150314, end: 20150314
  61. CARBOPLATIN. [Concomitant]
     Active Substance: CARBOPLATIN
     Indication: CHEMOTHERAPY
     Dosage: 0.7 G, D1: CYCLE 1/4-6
     Route: 042
     Dates: start: 20150314, end: 20150314
  62. 50% GLUCOSE INJECTION DEXTROSE INJECTION [Concomitant]
     Dosage: 100 ML/CC, QD
     Route: 041
     Dates: start: 20150314, end: 20150401
  63. ALANYLGLUTAMINE [Concomitant]
     Dosage: 100 MG, QD
     Route: 041
     Dates: start: 20150314, end: 20150401
  64. POTASSIUM CHLORIDE. [Concomitant]
     Active Substance: POTASSIUM CHLORIDE
     Dosage: 10 ML/CC, QD
     Route: 041
     Dates: start: 20150315, end: 20150316
  65. MAGNESIUM SULFATE. [Concomitant]
     Active Substance: MAGNESIUM SULFATE
     Dosage: 60 ML/CC DAILY , BID
     Route: 048
     Dates: start: 20150314, end: 20150317
  66. CEFOPERAZONE SODIUM (+) SULBACTAM SODIUM [Concomitant]
     Active Substance: CEFOPERAZONE SODIUM\SULBACTAM SODIUM
     Indication: ANTIINFLAMMATORY THERAPY
     Dosage: 9 G DAILY, Q8H
     Route: 041
     Dates: start: 20150311, end: 20150313
  67. FUROSEMIDE. [Concomitant]
     Active Substance: FUROSEMIDE
     Dosage: 40 MG DAILY, BID
     Route: 041
     Dates: start: 20150314, end: 20150401
  68. EMEND [Suspect]
     Active Substance: APREPITANT
     Indication: PROPHYLAXIS OF NAUSEA AND VOMITING
     Dosage: 125 MG, ONCE; DAY 1
     Route: 048
     Dates: start: 20150314, end: 20150314
  69. AMINO ACIDS (UNSPECIFIED) [Concomitant]
     Active Substance: AMINO ACIDS
     Dosage: 250 ML/CC, QD
     Route: 041
     Dates: start: 20150314, end: 20150401
  70. ALANYLGLUTAMINE [Concomitant]
     Indication: NUTRITIONAL SUPPLEMENTATION
     Dosage: 100 ML/CC, QD
     Route: 041
     Dates: start: 20150307, end: 20150313
  71. MAGNESIUM SULFATE. [Concomitant]
     Active Substance: MAGNESIUM SULFATE
     Dosage: 30 ML/C, ST
     Route: 048
     Dates: start: 20150310, end: 20150310
  72. MAGNESIUM SULFATE. [Concomitant]
     Active Substance: MAGNESIUM SULFATE
     Dosage: DAILY DOSE 60 ML/CC, BID
     Route: 048
     Dates: start: 20150311, end: 20150313
  73. CEFOPERAZONE SODIUM (+) SULBACTAM SODIUM [Concomitant]
     Active Substance: CEFOPERAZONE SODIUM\SULBACTAM SODIUM
     Indication: ANTIINFLAMMATORY THERAPY
     Dosage: 9 G DAILY, Q8H
     Route: 041
     Dates: start: 20150307, end: 20150308
  74. AMBROXOL HYDROCHLORIDE [Concomitant]
     Active Substance: AMBROXOL HYDROCHLORIDE
     Dosage: DAILY DOSE 30 MG, BID
     Route: 055
     Dates: start: 20150314, end: 20150320
  75. DEXAMETHASONE. [Concomitant]
     Active Substance: DEXAMETHASONE
     Indication: ANTIALLERGIC THERAPY
     Dosage: DAILY DOSE 8 MG, BID
     Route: 048
     Dates: start: 20150306, end: 20150307
  76. DEXAMETHASONE. [Concomitant]
     Active Substance: DEXAMETHASONE
     Dosage: UNK, BID
     Route: 048
     Dates: start: 20150314, end: 20150314
  77. FUROSEMIDE. [Concomitant]
     Active Substance: FUROSEMIDE
     Indication: DIURETIC THERAPY
     Dosage: 40 MG DAILY, BID
     Route: 041
     Dates: start: 20150305, end: 20150313

REACTIONS (6)
  - Nausea [Recovered/Resolved]
  - Vomiting [Recovered/Resolved]
  - Dizziness [Recovered/Resolved]
  - Nausea [Recovered/Resolved]
  - Hepatic function abnormal [Not Recovered/Not Resolved]
  - Vomiting [Recovered/Resolved]

NARRATIVE: CASE EVENT DATE: 20150316
